FAERS Safety Report 6423505-0 (Version None)
Quarter: 2009Q4

REPORT INFORMATION
  Report Type: 
  Country: None (occurrence: None)
  Receive Date: 20091030
  Receipt Date: 20091030
  Transmission Date: 20100525
  Serious: Yes (Hospitalization, Other)
  Sender: FDA-Public Use
  Company Number: None

PATIENT
  Sex: Female
  Weight: 51 kg

DRUGS (1)
  1. MIRENA [Suspect]

REACTIONS (7)
  - ABDOMINAL DISTENSION [None]
  - FALLOPIAN TUBE CYST [None]
  - HOT FLUSH [None]
  - MUSCLE SPASMS [None]
  - PAIN [None]
  - PELVIC PAIN [None]
  - WEIGHT INCREASED [None]
